FAERS Safety Report 22061626 (Version 1)
Quarter: 2023Q1

REPORT INFORMATION
  Report Type: Report from Study
  Country: CO (occurrence: CO)
  Receive Date: 20230304
  Receipt Date: 20230304
  Transmission Date: 20230418
  Serious: Yes (Hospitalization, Other)
  Sender: FDA-Public Use
  Company Number: CO-ABBVIE-22K-036-4418846-00

PATIENT
  Age: 22 Year
  Sex: Female
  Weight: 63 kg

DRUGS (2)
  1. HUMIRA [Suspect]
     Active Substance: ADALIMUMAB
     Indication: Hidradenitis
     Dosage: FORM STRENGTH: 80 MILLIGRAM
     Route: 058
     Dates: start: 20191209, end: 20220512
  2. HUMIRA [Suspect]
     Active Substance: ADALIMUMAB
     Dosage: LAST ADMINISTRATION DATE 2022?FORM STRENGTH: 80 MILLIGRAM
     Route: 058
     Dates: start: 20220818

REACTIONS (12)
  - Hidradenitis [Recovered/Resolved]
  - Surgery [Unknown]
  - Epistaxis [Recovering/Resolving]
  - Nasal septum deviation [Recovering/Resolving]
  - Von Willebrand^s disease [Not Recovered/Not Resolved]
  - Respiration abnormal [Recovering/Resolving]
  - Food poisoning [Recovered/Resolved]
  - Hidradenitis [Recovering/Resolving]
  - Inflammation [Recovering/Resolving]
  - Pain [Recovering/Resolving]
  - Pain [Recovered/Resolved]
  - Vomiting [Recovered/Resolved]

NARRATIVE: CASE EVENT DATE: 20210701
